FAERS Safety Report 8577316-0 (Version None)
Quarter: 2012Q3

REPORT INFORMATION
  Report Type: 
  Country: None (occurrence: None)
  Receive Date: 20120807
  Receipt Date: 20120727
  Transmission Date: 20120928
  Serious: Yes (Hospitalization, Other)
  Sender: FDA-Public Use
  Company Number: IT-ELI_LILLY_AND_COMPANY-IT200702005334

PATIENT
  Sex: Male

DRUGS (6)
  1. CAPECITABINE [Concomitant]
     Indication: PANCREATIC CARCINOMA
     Dosage: 1660 MG/M2, UNK
     Route: 048
     Dates: start: 20061221, end: 20070106
  2. LANSOPRAZOLE [Concomitant]
     Dosage: UNK, UNKNOWN
     Route: 065
  3. GEMCITABINE HYDROCHLORIDE [Suspect]
     Indication: PANCREATIC CARCINOMA
     Dosage: 1000 MG/M2, OTHER
     Route: 042
     Dates: start: 20061221, end: 20070104
  4. PROVERA [Concomitant]
  5. DEXAMETHASONE SODIUM PHOSPHATE [Concomitant]
     Dosage: UNK, UNKNOWN
     Route: 048
  6. TRAMADOL HCL [Concomitant]
     Dosage: 100 MG, UNK

REACTIONS (4)
  - MUCOSAL INFLAMMATION [None]
  - NEOPLASM PROGRESSION [None]
  - HYPERGLYCAEMIA [None]
  - THROMBOCYTOPENIA [None]
